FAERS Safety Report 25467598 (Version 1)
Quarter: 2025Q2

REPORT INFORMATION
  Report Type: Spontaneous
  Country: CN (occurrence: CN)
  Receive Date: 20250623
  Receipt Date: 20250623
  Transmission Date: 20250717
  Serious: Yes (Life-Threatening)
  Sender: BAYER HEALTHCARE PHARMACEUTICALS INC.
  Company Number: CN-MLMSERVICE-20250612-PI537679-00230-2

PATIENT
  Age: 57 Year
  Sex: Female

DRUGS (2)
  1. MOXIFLOXACIN [Suspect]
     Active Substance: MOXIFLOXACIN
     Route: 048
  2. DROTAVERINE [Suspect]
     Active Substance: DROTAVERINE
     Route: 048

REACTIONS (4)
  - Drug reaction with eosinophilia and systemic symptoms [Recovered/Resolved]
  - Dyspnoea [Recovered/Resolved]
  - Albuminuria [Recovered/Resolved]
  - Transaminases increased [Recovered/Resolved]
